FAERS Safety Report 21423299 (Version 11)
Quarter: 2023Q2

REPORT INFORMATION
  Report Type: Report from Study
  Country: GT (occurrence: GT)
  Receive Date: 20221007
  Receipt Date: 20230421
  Transmission Date: 20230721
  Serious: Yes (Death, Disabling, Other)
  Sender: FDA-Public Use
  Company Number: GT-NOVARTISPH-NVSC2022GT224641

PATIENT
  Age: 73 Year
  Sex: Male
  Weight: 86.168 kg

DRUGS (7)
  1. KISQALI [Suspect]
     Active Substance: RIBOCICLIB
     Indication: Breast cancer
     Dosage: 600 MG, QD
     Route: 048
     Dates: start: 20220616
  2. KISQALI [Suspect]
     Active Substance: RIBOCICLIB
     Dosage: 600 MG, QD
     Route: 048
     Dates: start: 20220828
  3. KISQALI [Suspect]
     Active Substance: RIBOCICLIB
     Dosage: 600 MG, QD
     Route: 048
     Dates: start: 20220927
  4. KISQALI [Suspect]
     Active Substance: RIBOCICLIB
     Dosage: 600 MG, QD
     Route: 048
     Dates: start: 20220928, end: 20230110
  5. KISQALI [Suspect]
     Active Substance: RIBOCICLIB
     Dosage: 600 MG, QD
     Route: 048
     Dates: start: 20221028
  6. KISQALI [Suspect]
     Active Substance: RIBOCICLIB
     Dosage: 2 DOSAGE FORM, QD (1 WEEK AGO)
     Route: 048
     Dates: start: 20230104, end: 20230110
  7. FULVESTRANT [Suspect]
     Active Substance: FULVESTRANT
     Indication: Product used for unknown indication
     Dosage: UNK
     Route: 065

REACTIONS (32)
  - Death [Fatal]
  - Movement disorder [Unknown]
  - Haemorrhage [Unknown]
  - Hallucination [Unknown]
  - Brain injury [Not Recovered/Not Resolved]
  - Haematochezia [Unknown]
  - Metastases to central nervous system [Not Recovered/Not Resolved]
  - Breast cancer [Unknown]
  - Malignant neoplasm progression [Unknown]
  - Back pain [Unknown]
  - Constipation [Unknown]
  - Nausea [Unknown]
  - Asthenia [Unknown]
  - Nodule [Recovering/Resolving]
  - Chest pain [Unknown]
  - Dysphemia [Unknown]
  - Influenza [Unknown]
  - Discomfort [Recovering/Resolving]
  - Headache [Recovering/Resolving]
  - Coordination abnormal [Unknown]
  - Bradykinesia [Unknown]
  - General physical health deterioration [Unknown]
  - Oral pain [Unknown]
  - Haemorrhoids [Unknown]
  - Gait disturbance [Unknown]
  - Speech disorder [Unknown]
  - Malaise [Unknown]
  - Weight decreased [Unknown]
  - Memory impairment [Unknown]
  - Decreased appetite [Unknown]
  - Alopecia [Unknown]
  - Drug ineffective [Unknown]

NARRATIVE: CASE EVENT DATE: 20220901
